FAERS Safety Report 5031378-6 (Version None)
Quarter: 2006Q2

REPORT INFORMATION
  Report Type: 
  Country: None (occurrence: None)
  Receive Date: 20060621
  Receipt Date: 20060608
  Transmission Date: 20061013
  Serious: Yes (Other)
  Sender: FDA-Public Use
  Company Number: DK-ROCHE-451238

PATIENT
  Age: 90 Year
  Sex: Female

DRUGS (3)
  1. DIAZEPAM [Suspect]
     Indication: NERVOUSNESS
     Dosage: DOSE REPORTED AS 5-10MG DAILY.
     Route: 065
  2. OXAZEPAM [Concomitant]
  3. NITRAZEPAM [Concomitant]
     Dosage: TAKEN IN THE EVENING

REACTIONS (3)
  - CLAVICLE FRACTURE [None]
  - FALL [None]
  - PELVIC FRACTURE [None]
